FAERS Safety Report 3925806 (Version 2)
Quarter: 2020Q3

REPORT INFORMATION
  Report Type: Report from Study
  Country: US (occurrence: US)
  Receive Date: 20030324
  Receipt Date: 20040811
  Transmission Date: 20201105
  Serious: Yes (Other)
  Sender: FDA-Public Use
  Company Number: NSADSS2003012410

PATIENT
  Age: 45 Year
  Sex: Female
  Weight: 77.7 kg

DRUGS (12)
  1. CISAPRIDE [Suspect]
     Active Substance: CISAPRIDE
     Route: 049
     Dates: start: 20020409
  2. PULMICORT FLEXHALER [Concomitant]
     Active Substance: BUDESONIDE
     Indication: ASTHMA
     Route: 055
  3. ROCEPHIN [Concomitant]
     Active Substance: CEFTRIAXONE SODIUM
     Route: 030
     Dates: start: 20021016
  4. CISAPRIDE [Suspect]
     Active Substance: CISAPRIDE
     Indication: GASTROOESOPHAGEAL REFLUX DISEASE
     Route: 049
     Dates: start: 20020409
  5. FLONASE [Concomitant]
     Active Substance: FLUTICASONE PROPIONATE
     Route: 045
  6. ZYRTEC [Concomitant]
     Active Substance: CETIRIZINE HYDROCHLORIDE
     Route: 049
  7. SINGULAIR [Concomitant]
     Active Substance: MONTELUKAST SODIUM
     Indication: ASTHMA
  8. MIRALAX [Concomitant]
     Active Substance: POLYETHYLENE GLYCOL 3350
     Indication: CONSTIPATION
     Route: 049
     Dates: start: 20020419
  9. PROVENTIL [Concomitant]
     Active Substance: ALBUTEROL
     Indication: ASTHMA
     Route: 049
  10. ZANTAC [Concomitant]
     Active Substance: RANITIDINE HYDROCHLORIDE
     Indication: ABDOMINAL PAIN
     Route: 049
  11. IRON [Concomitant]
     Active Substance: IRON
     Route: 049
     Dates: start: 20020419
  12. ALTACE [Concomitant]
     Active Substance: RAMIPRIL
     Route: 049
     Dates: start: 20020628

REACTIONS (1)
  - Electrocardiogram QT prolonged [None]

NARRATIVE: CASE EVENT DATE: 20030307
